FAERS Safety Report 12793613 (Version 1)
Quarter: 2016Q3

REPORT INFORMATION
  Report Type: Spontaneous
  Country: US (occurrence: US)
  Receive Date: 20160929
  Receipt Date: 20160929
  Transmission Date: 20161109
  Serious: No
  Sender: FDA-Public Use
  Company Number: None

PATIENT
  Sex: Male

DRUGS (22)
  1. BUPROPION HYDROCHLORIDE. [Suspect]
     Active Substance: BUPROPION HYDROCHLORIDE
     Indication: DEPRESSION
     Route: 048
     Dates: start: 20160815, end: 20160909
  2. CELEXA [Concomitant]
     Active Substance: CITALOPRAM HYDROBROMIDE
  3. CELLCEPT [Concomitant]
     Active Substance: MYCOPHENOLATE MOFETIL\MYCOPHENOLATE MOFETIL HYDROCHLORIDE
  4. VITAMIN [Concomitant]
     Active Substance: VITAMINS
  5. COQ10 [Concomitant]
     Active Substance: UBIDECARENONE
  6. LEATHIN [Concomitant]
  7. HAWTHORNE BENNY [Concomitant]
  8. STINGING NETTLE LEAF [Concomitant]
  9. NIACIN. [Concomitant]
     Active Substance: NIACIN
  10. TYLENOL [Concomitant]
     Active Substance: ACETAMINOPHEN
  11. ASPIRIN. [Concomitant]
     Active Substance: ASPIRIN
  12. CINNAMON. [Concomitant]
     Active Substance: CINNAMON
  13. TUMERIC [Concomitant]
     Active Substance: TURMERIC
  14. FISH OIL [Concomitant]
     Active Substance: FISH OIL
  15. TART CHERRY [Concomitant]
  16. XCEDRIN [Concomitant]
  17. TRAZODONE [Concomitant]
     Active Substance: TRAZODONE HYDROCHLORIDE
  18. QUERATON [Concomitant]
  19. FENOGREAK [Concomitant]
  20. GRAPE SEED [Concomitant]
  21. NUPRIN [Concomitant]
     Active Substance: IBUPROFEN
  22. VALERIAN [Concomitant]
     Active Substance: VALERIAN

REACTIONS (12)
  - Feeling abnormal [None]
  - Fall [None]
  - Malaise [None]
  - Constipation [None]
  - Myalgia [None]
  - Disturbance in attention [None]
  - Balance disorder [None]
  - Prostatic disorder [None]
  - Muscular weakness [None]
  - Headache [None]
  - Dysuria [None]
  - Bone pain [None]

NARRATIVE: CASE EVENT DATE: 20160815
